FAERS Safety Report 5504762-1 (Version None)
Quarter: 2007Q4

REPORT INFORMATION
  Report Type: 
  Country: None (occurrence: None)
  Receive Date: 20071102
  Receipt Date: 20071026
  Transmission Date: 20080405
  Serious: Yes (Other)
  Sender: FDA-Public Use
  Company Number: BR-ASTRAZENECA-2007UW25032

PATIENT
  Age: 72 Year
  Sex: Female
  Weight: 48.5 kg

DRUGS (6)
  1. ARIMIDEX [Suspect]
     Indication: BREAST CANCER
     Route: 048
     Dates: start: 20050101, end: 20070801
  2. ZOMETA [Concomitant]
     Indication: OSTEOPENIA
     Dosage: EVERY 6 MONTHS
     Route: 042
     Dates: start: 20050101, end: 20070801
  3. PURAN T4 [Concomitant]
     Route: 048
     Dates: start: 19970101
  4. LIPITOR [Concomitant]
     Indication: HYPERCHOLESTEROLAEMIA
     Dosage: ALTERNATE DAYS
     Route: 048
     Dates: start: 19990101
  5. OMEPRAZOLE [Concomitant]
     Route: 048
     Dates: start: 19990101
  6. OSCAL [Concomitant]
     Indication: OSTEOPENIA
     Route: 048
     Dates: start: 19990101

REACTIONS (1)
  - RESORPTION BONE INCREASED [None]
